FAERS Safety Report 23271294 (Version 1)
Quarter: 2023Q4

REPORT INFORMATION
  Report Type: Report from Study
  Country: EG (occurrence: EG)
  Receive Date: 20231207
  Receipt Date: 20231207
  Transmission Date: 20240110
  Serious: Yes (Hospitalization)
  Sender: FDA-Public Use
  Company Number: EG-002147023-NVSC2023EG256870

PATIENT
  Sex: Female

DRUGS (1)
  1. AFINITOR [Suspect]
     Active Substance: EVEROLIMUS
     Indication: Breast cancer metastatic
     Dosage: 10 MG
     Route: 048
     Dates: end: 202308

REACTIONS (5)
  - Renal disorder [Unknown]
  - Hyperuricaemia [Unknown]
  - Blood creatinine increased [Unknown]
  - Hyperglycaemia [Unknown]
  - Fatigue [Unknown]
